FAERS Safety Report 25919927 (Version 1)
Quarter: 2025Q4

REPORT INFORMATION
  Report Type: Spontaneous
  Country: US (occurrence: None)
  Receive Date: 20251009
  Receipt Date: 20251009
  Transmission Date: 20260118
  Serious: Yes (Hospitalization)
  Sender: FDA-CTU
  Company Number: None

PATIENT
  Sex: Female
  Weight: 79.65 kg

DRUGS (3)
  1. WINREVAIR [Suspect]
     Active Substance: SOTATERCEPT-CSRK
     Indication: Pulmonary arterial hypertension
     Dosage: 1.1 ML MILLITRE (S) EVERY 3 WEEKS SUBCUTANEOUS?
     Route: 058
     Dates: start: 20250123
  2. TREPROSTINIL [Suspect]
     Active Substance: TREPROSTINIL
  3. FLOLAN STERILE DILUENT [Concomitant]

REACTIONS (5)
  - Infusion site thrombosis [None]
  - Incorrect dose administered [None]
  - Flushing [None]
  - Paraesthesia [None]
  - Pain in extremity [None]
